FAERS Safety Report 22946952 (Version 2)
Quarter: 2024Q4

REPORT INFORMATION
  Report Type: Spontaneous
  Country: DK (occurrence: DK)
  Receive Date: 20230915
  Receipt Date: 20241112
  Transmission Date: 20250115
  Serious: Yes (Other)
  Sender: AUROBINDO
  Company Number: DK-MLMSERVICE-20230829-4514346-1

PATIENT
  Age: 6 Year
  Sex: Male

DRUGS (18)
  1. LAMOTRIGINE [Suspect]
     Active Substance: LAMOTRIGINE
     Indication: Seizure
     Dosage: UNK
     Route: 065
  2. VALPROIC ACID [Suspect]
     Active Substance: VALPROIC ACID
     Indication: Seizure
     Dosage: UNK
     Route: 065
  3. ESLICARBAZEPINE [Suspect]
     Active Substance: ESLICARBAZEPINE
     Indication: Generalised tonic-clonic seizure
     Dosage: UNK
     Route: 065
  4. ESLICARBAZEPINE [Suspect]
     Active Substance: ESLICARBAZEPINE
     Indication: Febrile convulsion
  5. LACOSAMIDE [Suspect]
     Active Substance: LACOSAMIDE
     Indication: Generalised tonic-clonic seizure
     Dosage: UNK
     Route: 065
  6. LACOSAMIDE [Suspect]
     Active Substance: LACOSAMIDE
     Indication: Febrile convulsion
  7. ZONISAMIDE [Suspect]
     Active Substance: ZONISAMIDE
     Indication: Generalised tonic-clonic seizure
     Dosage: UNK
     Route: 065
  8. ZONISAMIDE [Suspect]
     Active Substance: ZONISAMIDE
     Indication: Febrile convulsion
  9. VINPOCETINE [Concomitant]
     Active Substance: VINPOCETINE
     Indication: Generalised tonic-clonic seizure
     Dosage: 20 MILLIGRAM, 3 TIMES A DAY
     Route: 065
  10. VINPOCETINE [Concomitant]
     Active Substance: VINPOCETINE
     Indication: Febrile convulsion
     Dosage: 20 MILLIGRAM, TWO TIMES A DAY
     Route: 065
  11. METHYLPHENIDATE [Concomitant]
     Active Substance: METHYLPHENIDATE
     Indication: Attention deficit hyperactivity disorder
     Dosage: UNK
     Route: 065
  12. BRIVARACETAM [Concomitant]
     Active Substance: BRIVARACETAM
     Indication: Generalised tonic-clonic seizure
     Dosage: 260 MILLIGRAM, ONCE A DAY
     Route: 065
  13. BRIVARACETAM [Concomitant]
     Active Substance: BRIVARACETAM
     Indication: Febrile convulsion
     Dosage: 235 MILLIGRAM, ONCE A DAY
     Route: 065
  14. SERTRALINE [Concomitant]
     Active Substance: SERTRALINE HYDROCHLORIDE
     Indication: Product used for unknown indication
     Dosage: 100 MILLIGRAM, ONCE A DAY
     Route: 065
  15. ARIPIPRAZOLE [Concomitant]
     Active Substance: ARIPIPRAZOLE
     Indication: Autism spectrum disorder
     Dosage: UNK
     Route: 065
  16. RISPERIDONE [Concomitant]
     Active Substance: RISPERIDONE
     Indication: Product used for unknown indication
     Dosage: UNK
     Route: 065
  17. VALPROATE [Concomitant]
     Active Substance: VALPROIC ACID
     Indication: Generalised tonic-clonic seizure
     Dosage: 300 MILLIGRAM, ONCE A DAY
     Route: 065
  18. VALPROATE [Concomitant]
     Active Substance: VALPROIC ACID
     Indication: Febrile convulsion
     Dosage: 450 MILLIGRAM, ONCE A DAY
     Route: 065

REACTIONS (3)
  - Tic [Unknown]
  - Aggression [Unknown]
  - Therapy non-responder [Unknown]
